FAERS Safety Report 18856727 (Version 2)
Quarter: 2021Q2

REPORT INFORMATION
  Report Type: Spontaneous
  Country: US (occurrence: US)
  Receive Date: 20210207
  Receipt Date: 20210505
  Transmission Date: 20210717
  Serious: No
  Sender: FDA-Public Use
  Company Number: US-LUNDBECK-DKLU3025646

PATIENT
  Age: 46 Year
  Sex: Female
  Weight: 69.9 kg

DRUGS (1)
  1. VYEPTI [Suspect]
     Active Substance: EPTINEZUMAB-JJMR
     Indication: MIGRAINE
     Route: 042
     Dates: start: 20201209, end: 20201209

REACTIONS (4)
  - Migraine [Unknown]
  - Abdominal pain [Unknown]
  - Rash [Unknown]
  - Musculoskeletal stiffness [Unknown]

NARRATIVE: CASE EVENT DATE: 20201209
